FAERS Safety Report 8905767 (Version 1)
Quarter: 2012Q4

REPORT INFORMATION
  Report Type: 
  Country: AU (occurrence: AU)
  Receive Date: 20121113
  Receipt Date: 20121113
  Transmission Date: 20130627
  Serious: Yes (Other)
  Sender: FDA-Public Use
  Company Number: AU-BAXTER-2012BAX020547

PATIENT
  Sex: Female

DRUGS (1)
  1. KIOVIG [Suspect]
     Indication: DRUG USE FOR UNKNOWN INDICATION
     Route: 042
     Dates: start: 20120924, end: 20120924

REACTIONS (5)
  - Loss of consciousness [Unknown]
  - Bradycardia [Unknown]
  - Hypertension [Unknown]
  - Chills [Unknown]
  - Nausea [Unknown]
